FAERS Safety Report 8446453-3 (Version None)
Quarter: 2012Q2

REPORT INFORMATION
  Report Type: 
  Country: None (occurrence: None)
  Receive Date: 20120618
  Receipt Date: 20120326
  Transmission Date: 20120825
  Serious: Yes (Other)
  Sender: FDA-Public Use
  Company Number: US-TEVA-330399USA

PATIENT
  Sex: Female

DRUGS (4)
  1. FENTANYL-100 [Suspect]
     Dates: start: 20080601
  2. ACTIQ [Suspect]
     Indication: MUSCULOSKELETAL PAIN
     Route: 002
     Dates: start: 20080101
  3. NORCO [Concomitant]
     Indication: MUSCULOSKELETAL PAIN
     Dates: start: 20080101
  4. DURAGESIC-100 [Concomitant]
     Indication: MUSCULOSKELETAL PAIN
     Dates: start: 20080101

REACTIONS (3)
  - DRUG PRESCRIBING ERROR [None]
  - DRUG WITHDRAWAL SYNDROME [None]
  - OFF LABEL USE [None]
